FAERS Safety Report 7860649-0 (Version None)
Quarter: 2011Q4

REPORT INFORMATION
  Report Type: 
  Country: None (occurrence: None)
  Receive Date: 20111027
  Receipt Date: 20111012
  Transmission Date: 20120403
  Serious: Yes (Hospitalization)
  Sender: FDA-Public Use
  Company Number: US-BAYER-2011-052650

PATIENT
  Age: 20 Year
  Sex: Female
  Weight: 54 kg

DRUGS (5)
  1. NITROFURANTOIN [Concomitant]
  2. ACETAMINOPHEN W/ CODEINE [Concomitant]
  3. YAZ [Suspect]
     Dosage: UNK
     Dates: start: 20090101, end: 20100101
  4. IBUPROFEN [Concomitant]
  5. SULFAMETHOXAZOLE AND TRIMETHOPRIM [Concomitant]

REACTIONS (3)
  - GALLBLADDER DISORDER [None]
  - CHOLECYSTITIS CHRONIC [None]
  - PAIN [None]
